FAERS Safety Report 6914741-5 (Version None)
Quarter: 2010Q3

REPORT INFORMATION
  Report Type: 
  Country: None (occurrence: None)
  Receive Date: 20100804
  Receipt Date: 20100804
  Transmission Date: 20110219
  Serious: Yes (Hospitalization)
  Sender: FDA-Public Use
  Company Number: None

PATIENT
  Age: 57 Year
  Sex: Male

DRUGS (1)
  1. IBUPROFEN [Suspect]
     Dosage: PO
     Route: 048
     Dates: start: 20100311, end: 20100327

REACTIONS (3)
  - GASTRIC HAEMORRHAGE [None]
  - HYPOTENSION [None]
  - ULCER [None]
